FAERS Safety Report 12680062 (Version 1)
Quarter: 2016Q3

REPORT INFORMATION
  Report Type: Spontaneous
  Country: FR (occurrence: FR)
  Receive Date: 20160824
  Receipt Date: 20160824
  Transmission Date: 20161109
  Serious: Yes (Hospitalization)
  Sender: FDA-Public Use
  Company Number: FR-ROCHE-1819307

PATIENT
  Age: 74 Year
  Sex: Female

DRUGS (9)
  1. LEVOTHYROX [Concomitant]
     Active Substance: LEVOTHYROXINE
     Route: 048
     Dates: start: 201411
  2. RAMIPRIL. [Concomitant]
     Active Substance: RAMIPRIL
     Route: 048
     Dates: start: 201411
  3. MABTHERA [Suspect]
     Active Substance: RITUXIMAB
     Indication: CHRONIC LYMPHOCYTIC LEUKAEMIA
     Route: 041
     Dates: start: 20141013
  4. BENDAMUSTINE [Suspect]
     Active Substance: BENDAMUSTINE
     Indication: CHRONIC LYMPHOCYTIC LEUKAEMIA
     Route: 041
  5. GRANOCYTE [Concomitant]
     Active Substance: LENOGRASTIM
     Route: 051
  6. SPECIAFOLDINE [Concomitant]
     Active Substance: FOLIC ACID
     Route: 048
     Dates: start: 201411
  7. ZELITREX [Concomitant]
     Active Substance: VALACYCLOVIR HYDROCHLORIDE
     Route: 048
     Dates: start: 201411
  8. INNOHEP [Concomitant]
     Active Substance: TINZAPARIN SODIUM
     Route: 058
     Dates: start: 201411
  9. PENTACARINAT [Concomitant]
     Active Substance: PENTAMIDINE ISETHIONATE
     Dosage: SINGLE ADMINISTRATION
     Route: 055
     Dates: start: 20150105

REACTIONS (3)
  - Acute kidney injury [Recovered/Resolved]
  - Dermatitis exfoliative [Recovered/Resolved]
  - Hyperthermia [Recovered/Resolved]

NARRATIVE: CASE EVENT DATE: 20141208
